FAERS Safety Report 6128780-8 (Version None)
Quarter: 2009Q1

REPORT INFORMATION
  Report Type: 
  Country: None (occurrence: None)
  Receive Date: 20090320
  Receipt Date: 20090310
  Transmission Date: 20090719
  Serious: Yes (Death, Hospitalization)
  Sender: FDA-Public Use
  Company Number: 2009EU000817

PATIENT
  Age: 57 Year
  Sex: Male
  Weight: 56 kg

DRUGS (10)
  1. PROGRAF [Suspect]
     Indication: HEART TRANSPLANT
     Dosage: 3 MG BID ORAL; 10 MG UID/QD ORAL; 6 MG, UID/QD ORAL
     Route: 048
     Dates: start: 20080313, end: 20080904
  2. PROGRAF [Suspect]
     Indication: HEART TRANSPLANT
     Dosage: 3 MG BID ORAL; 10 MG UID/QD ORAL; 6 MG, UID/QD ORAL
     Route: 048
     Dates: start: 20080905, end: 20090112
  3. CELLCEPT [Concomitant]
  4. SOLUPRED (PREDNISOLONE SODIUM SULFOBENZOATE) [Concomitant]
  5. KARDEGIC (ACETYLSALICYLATE LYSINE) [Concomitant]
  6. CARDENSIEL (BISOPRODOL FUMARATE) [Concomitant]
  7. MOPRAL [Concomitant]
  8. BIPRETERAX (INDAPAMIDE, PERINDOPRIL ERBUMINE) [Concomitant]
  9. LASIX [Concomitant]
  10. ZYLORIC [Concomitant]

REACTIONS (10)
  - BRAIN ABSCESS [None]
  - CARDIAC FAILURE [None]
  - COMPLICATIONS OF TRANSPLANTED HEART [None]
  - CORONARY ARTERY DISEASE [None]
  - CORONARY ARTERY OCCLUSION [None]
  - DIALYSIS [None]
  - HEART TRANSPLANT REJECTION [None]
  - NOCARDIOSIS [None]
  - RENAL FAILURE [None]
  - SUDDEN DEATH [None]
